FAERS Safety Report 7737722-0 (Version None)
Quarter: 2011Q3

REPORT INFORMATION
  Report Type: 
  Country: None (occurrence: None)
  Receive Date: 20110908
  Receipt Date: 20110829
  Transmission Date: 20111222
  Serious: Yes (Hospitalization, Other)
  Sender: FDA-Public Use
  Company Number: US-ELI_LILLY_AND_COMPANY-US201106008616

PATIENT
  Sex: Female
  Weight: 98.413 kg

DRUGS (23)
  1. SYNTHROID [Concomitant]
     Dosage: 88 UG, QD
  2. SPIRIVA [Concomitant]
     Dosage: 1 DF, QD
     Route: 055
  3. GLIPIZIDE [Concomitant]
     Dosage: 5 MG, BID
  4. LEVOXYL [Concomitant]
     Dosage: 88 UG, QD
  5. ADVAIR DISKUS 100/50 [Concomitant]
     Dosage: 2 DF, QD
     Route: 055
  6. ALBUTEROL SULFATE AUTOHALER [Concomitant]
     Dosage: 1 DF, QID
  7. CALCIUM WITH VITAMIN D             /00944201/ [Concomitant]
     Dosage: 600 MG, BID
  8. LASIX [Concomitant]
     Dosage: 80 MG, QD
  9. ASPIRIN [Concomitant]
     Dosage: 81 MG, QD
  10. VITAMIN D [Concomitant]
     Dosage: 3 DF, QD
  11. POTASSIUM [Concomitant]
     Dosage: 20 MEQ, QD
  12. CELEXA [Concomitant]
     Dosage: 20 MG, QD
  13. METOPROLOL TARTRATE [Concomitant]
     Dosage: 25 MG, BID
  14. ATIVAN [Concomitant]
  15. FISH OIL [Concomitant]
     Dosage: 2000 MG, QD
  16. BUMEX [Concomitant]
  17. ADCIRCA [Suspect]
     Indication: PULMONARY HYPERTENSION
     Dosage: 40 MG, QD
     Route: 048
     Dates: start: 20100401
  18. SPIRONOLACTONE [Concomitant]
     Dosage: 25 MG, BID
  19. FOSAMAX [Concomitant]
  20. VICODIN [Concomitant]
  21. MULTI-VITAMIN [Concomitant]
     Dosage: 1 DF, QD
  22. NIACIN [Concomitant]
     Dosage: 500 MG, QD
  23. SIMVASTATIN [Concomitant]
     Dosage: 80 MG, QD

REACTIONS (2)
  - RIGHT VENTRICULAR FAILURE [None]
  - ASCITES [None]
